FAERS Safety Report 6810483-5 (Version None)
Quarter: 2010Q2

REPORT INFORMATION
  Report Type: 
  Country: None (occurrence: None)
  Receive Date: 20100630
  Receipt Date: 20100621
  Transmission Date: 20101027
  Serious: Yes (Other)
  Sender: FDA-Public Use
  Company Number: JP-PFIZER INC-2010070538

PATIENT

DRUGS (1)
  1. ZITHROMAX [Suspect]
     Route: 048

REACTIONS (2)
  - ELECTROCARDIOGRAM QT PROLONGED [None]
  - VENTRICULAR FIBRILLATION [None]
